FAERS Safety Report 4527251-X (Version None)
Quarter: 2004Q4

REPORT INFORMATION
  Report Type: 
  Country: None (occurrence: None)
  Receive Date: 20041214
  Receipt Date: 20041214
  Transmission Date: 20050328
  Serious: Yes (Hospitalization)
  Sender: FDA-Public Use
  Company Number: None

PATIENT
  Age: 64 Year
  Sex: Male
  Weight: 78.9 kg

DRUGS (6)
  1. GLUCOPHAGE [Suspect]
     Indication: HEPATITIS CHOLESTATIC
     Dosage: PO BID
     Route: 048
  2. ZOCOR [Suspect]
     Dosage: PO HS
     Route: 048
  3. GLIPIZIDE [Concomitant]
  4. LEVOTHYROXINE SODIUM [Concomitant]
  5. VALSARTEN [Concomitant]
  6. ASPIRIN [Concomitant]

REACTIONS (8)
  - ABDOMINAL PAIN UPPER [None]
  - CHILLS [None]
  - HEPATITIS CHOLESTATIC [None]
  - JAUNDICE [None]
  - NAUSEA [None]
  - PRURITUS [None]
  - PYREXIA [None]
  - VOMITING [None]
